FAERS Safety Report 18842244 (Version 1)
Quarter: 2021Q1

REPORT INFORMATION
  Report Type: Spontaneous
  Country: GB (occurrence: GB)
  Receive Date: 20210204
  Receipt Date: 20210204
  Transmission Date: 20210419
  Serious: Yes (Other)
  Sender: FDA-Public Use
  Company Number: GB-GILEAD-2021-0515493

PATIENT
  Age: 31 Year
  Sex: Male

DRUGS (3)
  1. ATRIPLA [Suspect]
     Active Substance: EFAVIRENZ\EMTRICITABINE\TENOFOVIR DISOPROXIL FUMARATE
     Indication: HIV INFECTION
     Dosage: 600MG/200MG/245MG, QD
     Route: 048
  2. PEGINTERFERON ALFA?2A. [Concomitant]
     Active Substance: PEGINTERFERON ALFA-2A
     Indication: HEPATITIS B
  3. CITALOPRAM [Concomitant]
     Active Substance: CITALOPRAM HYDROBROMIDE
     Indication: DEPRESSION

REACTIONS (3)
  - Hepatitis B [Unknown]
  - Head and neck cancer [Unknown]
  - Depression [Unknown]
